FAERS Safety Report 6696922-1 (Version None)
Quarter: 2010Q2

REPORT INFORMATION
  Report Type: 
  Country: None (occurrence: None)
  Receive Date: 20100426
  Receipt Date: 20100421
  Transmission Date: 20101027
  Serious: Yes (Other)
  Sender: FDA-Public Use
  Company Number: US-BRISTOL-MYERS SQUIBB COMPANY-15059546

PATIENT
  Age: 64 Year
  Sex: Female
  Weight: 48 kg

DRUGS (4)
  1. ERBITUX [Suspect]
     Indication: OROPHARYNGEAL CANCER STAGE UNSPECIFIED
     Dosage: 20-JAN-2010 TO 18-MAR-2010=365MG/WEEK. 01-APR-2010=730MG IN 2 WEEKDOSE.
     Route: 042
     Dates: start: 20100113
  2. TAXOL [Suspect]
     Dates: start: 20100113, end: 20100318
  3. CARBOPLATIN [Suspect]
     Dates: start: 20100113, end: 20100318
  4. XANAX [Concomitant]

REACTIONS (1)
  - CEREBROVASCULAR ACCIDENT [None]
